FAERS Safety Report 9236248 (Version 2)
Quarter: 2013Q3

REPORT INFORMATION
  Report Type: Spontaneous
  Country: FR (occurrence: FR)
  Receive Date: 20130417
  Receipt Date: 20130904
  Transmission Date: 20140515
  Serious: Yes (Disabling, Other)
  Sender: FDA-Public Use
  Company Number: FR-ELI_LILLY_AND_COMPANY-FR201304001718

PATIENT
  Age: 74 Year
  Sex: Female

DRUGS (5)
  1. ZYPREXA [Suspect]
     Dosage: 10 MG, QD
     Route: 048
     Dates: start: 20120925, end: 201210
  2. ZYPREXA [Suspect]
     Dosage: 5 MG, QD
  3. SEROPLEX [Suspect]
     Dosage: 30 MG, QD
     Route: 048
     Dates: start: 20120925
  4. EUPANTOL [Concomitant]
     Dosage: 20 MG, QD
  5. ART [Concomitant]
     Dosage: 50 MG, QD

REACTIONS (1)
  - Camptocormia [Not Recovered/Not Resolved]
